FAERS Safety Report 7492218-9 (Version None)
Quarter: 2011Q2

REPORT INFORMATION
  Report Type: 
  Country: None (occurrence: None)
  Receive Date: 20110519
  Receipt Date: 20101115
  Transmission Date: 20111010
  Serious: No
  Sender: FDA-Public Use
  Company Number: US-NOVEN-ALL1-2010-06008

PATIENT
  Sex: Male
  Weight: 27.211 kg

DRUGS (2)
  1. DAYTRANA [Suspect]
     Dosage: 10 MG, 1X/DAY:QD
     Route: 062
     Dates: start: 20100801, end: 20100801
  2. DAYTRANA [Suspect]
     Dosage: 10 UNK, 1X/DAY:QD
     Route: 062
     Dates: start: 20100801

REACTIONS (6)
  - ABNORMAL BEHAVIOUR [None]
  - EDUCATIONAL PROBLEM [None]
  - APPLICATION SITE IRRITATION [None]
  - PRODUCT QUALITY ISSUE [None]
  - DISTURBANCE IN ATTENTION [None]
  - DRUG INEFFECTIVE [None]
